FAERS Safety Report 21590237 (Version 1)
Quarter: 2022Q4

REPORT INFORMATION
  Report Type: Spontaneous
  Country: US (occurrence: US)
  Receive Date: 20221114
  Receipt Date: 20221114
  Transmission Date: 20230113
  Serious: Yes (Death, Hospitalization)
  Sender: FDA-Public Use
  Company Number: US-MYLANLABS-2022M1124127

PATIENT
  Age: 42 Year
  Sex: Male

DRUGS (2)
  1. HEPARIN [Suspect]
     Active Substance: HEPARIN SODIUM
     Indication: Pulmonary embolism
     Dosage: 80 INTERNATIONAL UNIT/KILOGRAM, INFUSION
     Route: 042
  2. HEPARIN [Suspect]
     Active Substance: HEPARIN SODIUM
     Dosage: 18 INTERNATIONAL UNIT/KILOGRAM, QH, INFUSION
     Route: 042

REACTIONS (4)
  - Hypotension [Fatal]
  - Haemodynamic instability [Fatal]
  - Brain herniation [Fatal]
  - Subarachnoid haemorrhage [Fatal]
